FAERS Safety Report 20786083 (Version 1)
Quarter: 2022Q2

REPORT INFORMATION
  Report Type: Spontaneous
  Country: US (occurrence: None)
  Receive Date: 20220504
  Receipt Date: 20220504
  Transmission Date: 20220721
  Serious: No
  Sender: FDA-Public Use
  Company Number: US-ROCHE-3037261

PATIENT
  Sex: Male
  Weight: 77.180 kg

DRUGS (2)
  1. OCREVUS [Suspect]
     Active Substance: OCRELIZUMAB
     Indication: Multiple sclerosis
     Dosage: LAST DOSE OF OCREVUS IN NOV/2021 AND HIS NEXT DOSE IS SCHEDULED FOR MAY/2022.
     Route: 065
     Dates: start: 2017
  2. TECFIDERA [Concomitant]
     Active Substance: DIMETHYL FUMARATE
     Indication: Multiple sclerosis

REACTIONS (2)
  - Alopecia [Unknown]
  - Body height decreased [Unknown]
